FAERS Safety Report 19380564 (Version 1)
Quarter: 2021Q2

REPORT INFORMATION
  Report Type: Spontaneous
  Country: US (occurrence: US)
  Receive Date: 20210604
  Receipt Date: 20210604
  Transmission Date: 20210717
  Serious: Yes (Other)
  Sender: FDA-Public Use
  Company Number: None

PATIENT

DRUGS (1)
  1. NEOSTIGMINE METHYLSULFATE INJECTION [Suspect]
     Active Substance: NEOSTIGMINE METHYLSULFATE
     Indication: DRUG THERAPY
     Dates: start: 20210604, end: 20210604

REACTIONS (3)
  - Therapeutic product effect incomplete [None]
  - Tachycardia [None]
  - Muscle twitching [None]
